FAERS Safety Report 19426227 (Version 2)
Quarter: 2021Q3

REPORT INFORMATION
  Report Type: Report from Study
  Country: BR (occurrence: BR)
  Receive Date: 20210616
  Receipt Date: 20210707
  Transmission Date: 20211014
  Serious: Yes (Other)
  Sender: FDA-Public Use
  Company Number: BR-JNJFOC-20210624384

PATIENT
  Age: 53 Year
  Sex: Male

DRUGS (6)
  1. GLIFAGE [Concomitant]
     Active Substance: METFORMIN HYDROCHLORIDE
     Indication: DIABETES MELLITUS
     Route: 048
  2. SIMPONI [Suspect]
     Active Substance: GOLIMUMAB
     Indication: ANKYLOSING SPONDYLITIS
     Route: 058
     Dates: start: 20210219
  3. SINVASTATINA [Concomitant]
     Active Substance: SIMVASTATIN
     Indication: BLOOD CHOLESTEROL
     Route: 048
  4. INSULIN HUMAN INJECTION, ISOPHANE [Concomitant]
     Active Substance: INSULIN HUMAN
     Indication: DIABETES MELLITUS
     Route: 058
  5. AMLODIPINE;LOSARTAN [Concomitant]
     Active Substance: AMLODIPINE\LOSARTAN
     Indication: BLOOD PRESSURE MEASUREMENT
     Route: 048
  6. ISORDIL [Concomitant]
     Active Substance: ISOSORBIDE DINITRATE
     Indication: CARDIAC DISORDER
     Route: 048

REACTIONS (4)
  - Ankylosing spondylitis [Not Recovered/Not Resolved]
  - Hepatitis B [Unknown]
  - Asthma [Unknown]
  - Intervertebral disc protrusion [Not Recovered/Not Resolved]
